FAERS Safety Report 6137134-X (Version None)
Quarter: 2009Q1

REPORT INFORMATION
  Report Type: 
  Country: None (occurrence: None)
  Receive Date: 20090330
  Receipt Date: 20090320
  Transmission Date: 20090719
  Serious: Yes (Hospitalization)
  Sender: FDA-Public Use
  Company Number: US-ELI_LILLY_AND_COMPANY-US200903005923

PATIENT
  Sex: Female

DRUGS (5)
  1. HUMULIN R [Suspect]
     Dosage: UNK, UNK
     Dates: start: 20081001
  2. HUMULIN N [Suspect]
     Dosage: UNK, UNK
     Dates: start: 20081001
  3. ILETIN [Suspect]
  4. VITAMIN B COMPLEX CAP [Concomitant]
     Dates: start: 19490101
  5. GLUCOSAMINE /CHOND /03040701/ [Concomitant]
     Dosage: UNK, 3/D
     Dates: start: 19990101

REACTIONS (11)
  - BLOOD GLUCOSE DECREASED [None]
  - BLOOD GLUCOSE INCREASED [None]
  - CONFUSIONAL STATE [None]
  - DIZZINESS [None]
  - DYSSTASIA [None]
  - FALL [None]
  - FEAR [None]
  - GAIT DISTURBANCE [None]
  - HIP ARTHROPLASTY [None]
  - PALLOR [None]
  - THERAPEUTIC RESPONSE DECREASED [None]
